FAERS Safety Report 19445379 (Version 3)
Quarter: 2021Q3

REPORT INFORMATION
  Report Type: Spontaneous
  Country: US (occurrence: US)
  Receive Date: 20210622
  Receipt Date: 20210902
  Transmission Date: 20211014
  Serious: Yes (Other)
  Sender: FDA-Public Use
  Company Number: US-LUPIN PHARMACEUTICALS INC.-2021-09623

PATIENT
  Sex: Female

DRUGS (1)
  1. LISINOPRIL TABLETS USP, 20MG [Suspect]
     Active Substance: LISINOPRIL
     Indication: BLOOD PRESSURE INCREASED
     Dosage: 20 MILLIGRAM, QD
     Route: 065

REACTIONS (3)
  - Anxiety [Unknown]
  - Blood pressure increased [Unknown]
  - Nervousness [Unknown]
